FAERS Safety Report 9045156 (Version 2)
Quarter: 2013Q1

REPORT INFORMATION
  Report Type: Report from Study
  Country: US (occurrence: US)
  Receive Date: 20130130
  Receipt Date: 20130315
  Transmission Date: 20140127
  Serious: Yes (Other)
  Sender: FDA-Public Use
  Company Number: US-ABBOTT-13P-163-1039845-00

PATIENT
  Age: 49 None
  Sex: Female

DRUGS (8)
  1. HUMIRA [Suspect]
     Indication: OSTEOARTHRITIS
     Dates: start: 201207
  2. HUMIRA [Suspect]
     Dates: start: 201301
  3. PROGRAF [Concomitant]
     Indication: PROPHYLAXIS AGAINST TRANSPLANT REJECTION
  4. PREDNISONE [Concomitant]
     Indication: PRODUCT USED FOR UNKNOWN INDICATION
     Dosage: 15 MG DAILY
  5. BACTRIM [Concomitant]
     Indication: PROPHYLAXIS
  6. OMEPRAZOLE [Concomitant]
     Indication: PRODUCT USED FOR UNKNOWN INDICATION
  7. MAGNESIUM [Concomitant]
     Indication: PRODUCT USED FOR UNKNOWN INDICATION
  8. MULTIVITAMIN [Concomitant]
     Indication: PRODUCT USED FOR UNKNOWN INDICATION

REACTIONS (3)
  - Cholangitis sclerosing [Recovered/Resolved]
  - Device malfunction [Unknown]
  - Off label use [Unknown]
